FAERS Safety Report 9420677 (Version 3)
Quarter: 2014Q3

REPORT INFORMATION
  Report Type: Spontaneous
  Country: US (occurrence: US)
  Receive Date: 20130725
  Receipt Date: 20140703
  Transmission Date: 20150326
  Serious: Yes (Hospitalization)
  Sender: FDA-Public Use
  Company Number: PHEH2013US015657

PATIENT
  Age: 59 Year
  Sex: Female

DRUGS (1)
  1. GILENYA [Suspect]
     Active Substance: FINGOLIMOD HYDROCHLORIDE
     Indication: RELAPSING-REMITTING MULTIPLE SCLEROSIS
     Dosage: 0.5 MG, QD
     Route: 048
     Dates: start: 201101, end: 201207

REACTIONS (17)
  - Decreased appetite [Recovering/Resolving]
  - Non-Hodgkin^s lymphoma [Not Recovered/Not Resolved]
  - Night sweats [Recovered/Resolved]
  - Dysphagia [Unknown]
  - Chest discomfort [Unknown]
  - Haemoglobin decreased [Unknown]
  - Malaise [Unknown]
  - Neutropenia [Unknown]
  - Weight decreased [Recovering/Resolving]
  - Haematocrit decreased [Unknown]
  - Monocyte count increased [Unknown]
  - Pleural effusion [Unknown]
  - Splenomegaly [Unknown]
  - Red blood cell count decreased [Unknown]
  - White blood cell disorder [Unknown]
  - Lymphocyte count increased [Unknown]
  - Lymphadenopathy [Recovering/Resolving]

NARRATIVE: CASE EVENT DATE: 201207
